FAERS Safety Report 6768130-7 (Version None)
Quarter: 2010Q2

REPORT INFORMATION
  Report Type: 
  Country: None (occurrence: None)
  Receive Date: 20100614
  Receipt Date: 20100608
  Transmission Date: 20101027
  Serious: Yes (Death, Other)
  Sender: FDA-Public Use
  Company Number: PHHY2010DE37318

PATIENT
  Age: 52 Year
  Sex: Male

DRUGS (5)
  1. IMATINIB [Suspect]
     Indication: METASTASES TO LIVER
     Dosage: 400 MG, DAILY
  2. IMATINIB [Suspect]
     Dosage: 800 MG, DAILY
  3. IMATINIB [Suspect]
     Dosage: UNK
     Dates: start: 20070901
  4. SUNITINIB MALATE [Concomitant]
     Indication: METASTASES TO LIVER
     Dosage: 50 MG, DAILY
  5. SUNITINIB MALATE [Concomitant]
     Dosage: 25 MG, DAILY

REACTIONS (13)
  - ABDOMINAL PAIN [None]
  - ASCITES [None]
  - EXPLORATIVE LAPAROTOMY [None]
  - GASTROINTESTINAL STROMAL TUMOUR [None]
  - GENE MUTATION IDENTIFICATION TEST POSITIVE [None]
  - HEPATIC FAILURE [None]
  - INFERIOR VENA CAVAL OCCLUSION [None]
  - LIVER FUNCTION TEST ABNORMAL [None]
  - MALIGNANT NEOPLASM PROGRESSION [None]
  - PHOTOSENSITIVITY REACTION [None]
  - PLEURAL EFFUSION [None]
  - PORTAL VEIN THROMBOSIS [None]
  - RENAL FAILURE [None]
